FAERS Safety Report 11855710 (Version 2)
Quarter: 2016Q1

REPORT INFORMATION
  Report Type: Spontaneous
  Country: FR (occurrence: FR)
  Receive Date: 20151221
  Receipt Date: 20160226
  Transmission Date: 20160526
  Serious: Yes (Other)
  Sender: FDA-Public Use
  Company Number: FR-BAYER-2015-489294

PATIENT
  Age: 10 Year
  Sex: Male

DRUGS (2)
  1. KOGENATE [Suspect]
     Active Substance: ANTIHEMOPHILIC FACTOR, HUMAN RECOMBINANT
     Indication: IMMUNE TOLERANCE INDUCTION
     Dosage: UNK
     Dates: start: 200411, end: 200709
  2. REFACTO [Suspect]
     Active Substance: ANTIHEMOPHILIC FACTOR, HUMAN RECOMBINANT RESIDUES 743-1636 DELETED
     Dosage: UNK
     Dates: start: 200411

REACTIONS (4)
  - Anti factor VIII antibody positive [None]
  - Anti factor VIII antibody increased [Recovered/Resolved]
  - Haemarthrosis [None]
  - Drug ineffective [None]

NARRATIVE: CASE EVENT DATE: 200511
